FAERS Safety Report 10408158 (Version 2)
Quarter: 2016Q3

REPORT INFORMATION
  Report Type: Spontaneous
  Country: BR (occurrence: BR)
  Receive Date: 20140826
  Receipt Date: 20160730
  Transmission Date: 20161109
  Serious: Yes (Death, Hospitalization, Other)
  Sender: FDA-Public Use
  Company Number: BR-AMGEN-BRASP2014064524

PATIENT
  Age: 74 Year
  Sex: Female
  Weight: 60 kg

DRUGS (32)
  1. PROFLAM [Concomitant]
     Dosage: 200 MG, DAILY ( 100 MG 2 ^CP^ DAILY)
  2. CIPROFLOXACIN. [Concomitant]
     Active Substance: CIPROFLOXACIN
     Dosage: UNK
  3. FOLIC ACID. [Concomitant]
     Active Substance: FOLIC ACID
  4. SIMVASTATIN. [Concomitant]
     Active Substance: SIMVASTATIN
     Dosage: UNK
  5. SIMVASTATIN. [Concomitant]
     Active Substance: SIMVASTATIN
     Dosage: UNK
  6. ARAVA [Concomitant]
     Active Substance: LEFLUNOMIDE
     Dosage: 20 MG, DAILY (1 ^CP^ A DAY)
  7. CYCLOBENZAPRINE HYDROCHLORIDE. [Concomitant]
     Active Substance: CYCLOBENZAPRINE HYDROCHLORIDE
     Dosage: 5 MG, DAILY (1 ^CP^ A DAY)
  8. OMEPRAZOLE. [Concomitant]
     Active Substance: OMEPRAZOLE
     Dosage: 1 DF,(1 ^CP^ IN THE MORNING)
  9. B COMPLEX                          /00322001/ [Concomitant]
     Dosage: UNK
  10. ENBREL [Suspect]
     Active Substance: ETANERCEPT
     Indication: RHEUMATOID ARTHRITIS
     Dosage: 50 MG, ONCE A WEEK
     Route: 065
     Dates: start: 20081027, end: 2008
  11. ENBREL [Suspect]
     Active Substance: ETANERCEPT
     Dosage: UNK
     Route: 065
  12. AMLODIPINE [Concomitant]
     Active Substance: AMLODIPINE BESYLATE
     Dosage: 5 MG, UNK
  13. CAPTOPRIL. [Concomitant]
     Active Substance: CAPTOPRIL
     Dosage: UNK
  14. ENBREL [Suspect]
     Active Substance: ETANERCEPT
     Dosage: 25 MG, 2X/WEEK
     Route: 058
     Dates: start: 20081107
  15. METFORMIN [Concomitant]
     Active Substance: METFORMIN HYDROCHLORIDE
     Dosage: 850 MG (2 ^CP^ IN THE MORNING AND EVENING)
  16. PREDNISOLONE. [Concomitant]
     Active Substance: PREDNISOLONE
     Dosage: 54 MG, DAILY BEFORE LUNCH
  17. LOSARTAN. [Concomitant]
     Active Substance: LOSARTAN
     Indication: HYPERTENSION
     Dosage: 50 MG, UNK
  18. DIURET [Concomitant]
     Dosage: 40 MG, DAILY ( 1 ^CP^ IN THE MORNING)
  19. PHENOBARBITAL. [Concomitant]
     Active Substance: PHENOBARBITAL
     Dosage: UNK
  20. INSULIN [Concomitant]
     Active Substance: INSULIN NOS
     Dosage: UNK
  21. FERROUS SULFATE. [Concomitant]
     Active Substance: FERROUS SULFATE
     Dosage: UNK
  22. LOSARTAN. [Concomitant]
     Active Substance: LOSARTAN
     Dosage: 50 MG, UNK
  23. INSULIN [Concomitant]
     Active Substance: INSULIN NOS
     Dosage: UNK
  24. METFORMIN [Concomitant]
     Active Substance: METFORMIN HYDROCHLORIDE
     Indication: DIABETES MELLITUS
     Dosage: 850 MG, UNK
  25. LOSARTAN POTASSIUM AND HYDROCHLOROTHIAZIDE [Concomitant]
     Active Substance: HYDROCHLOROTHIAZIDE\LOSARTAN POTASSIUM
     Dosage: 100 MG + 25 MG (2 ^CP^ IN THE MORNING AND EVENING),
  26. RANITIDINE. [Concomitant]
     Active Substance: RANITIDINE
     Dosage: UNK
  27. SPIRONOLACTONE. [Concomitant]
     Active Substance: SPIRONOLACTONE
  28. ONBRIZE [Concomitant]
     Active Substance: INDACATEROL MALEATE
     Dosage: UNK
  29. ENBREL [Suspect]
     Active Substance: ETANERCEPT
     Dosage: UNK
     Route: 065
  30. AMLODIPINE [Concomitant]
     Active Substance: AMLODIPINE BESYLATE
     Dosage: 5 MG, UNK
  31. AAS [Concomitant]
     Active Substance: ASPIRIN
     Dosage: 1 DF, UNK ( 1 ^CP^ AFTER LUNCH)
  32. NORIPURUM [Concomitant]
     Active Substance: IRON POLYMALTOSE
     Dosage: 100 MG (1 ^CP^ AFTER LUNCH)

REACTIONS (11)
  - Dementia Alzheimer^s type [Fatal]
  - Hypertension [Unknown]
  - Death [Fatal]
  - Pneumonia [Fatal]
  - Brain neoplasm benign [Unknown]
  - Asthma [Unknown]
  - Gait disturbance [Unknown]
  - Urinary tract infection [Unknown]
  - Sepsis [Fatal]
  - Seizure [Unknown]
  - Osteoarthritis [Unknown]

NARRATIVE: CASE EVENT DATE: 20081027
